FAERS Safety Report 5209893-1 (Version None)
Quarter: 2006Q4

REPORT INFORMATION
  Report Type: 
  Country: None (occurrence: None)
  Receive Date: 20061116
  Receipt Date: 20060307
  Transmission Date: 20070319
  Serious: Yes (Other)
  Sender: FDA-Public Use
  Company Number: 2005US001837

PATIENT
  Sex: Male

DRUGS (1)
  1. ADENOCARD [Suspect]
     Indication: SUPRAVENTRICULAR TACHYCARDIA
     Dosage: INTRACORONARY
     Route: 022

REACTIONS (1)
  - CARDIAC ARREST [None]
